FAERS Safety Report 6821542-5 (Version None)
Quarter: 2010Q3

REPORT INFORMATION
  Report Type: 
  Country: None (occurrence: None)
  Receive Date: 20100707
  Receipt Date: 20090129
  Transmission Date: 20110219
  Serious: No
  Sender: FDA-Public Use
  Company Number: US-PFIZER INC-2009165576

PATIENT
  Age: 45 Year
  Sex: Female

DRUGS (7)
  1. ZOLOFT [Suspect]
  2. HUMIRA [Suspect]
     Indication: PSORIASIS
     Dosage: 40 MG, 1 IN 2 WK
     Route: 058
     Dates: start: 20080701
  3. ETANERCEPT [Suspect]
     Indication: PSORIASIS
     Dosage: UNK
     Route: 065
     Dates: start: 20080101
  4. VENLAFAXINE [Suspect]
     Dosage: UNK
  5. LEVOTHYROXINE [Suspect]
     Indication: HYPOTHYROIDISM
     Dosage: UNK
  6. GLIMEPIRIDE [Suspect]
     Indication: DIABETES MELLITUS
     Dosage: UNK
  7. EZETIMIBE [Suspect]
     Indication: BLOOD CHOLESTEROL INCREASED
     Dosage: UNK

REACTIONS (1)
  - HEPATIC ENZYME INCREASED [None]
